FAERS Safety Report 10262805 (Version 1)
Quarter: 2014Q2

REPORT INFORMATION
  Report Type: Spontaneous
  Country: ES (occurrence: ES)
  Receive Date: 20140626
  Receipt Date: 20140626
  Transmission Date: 20141212
  Serious: Yes (Life-Threatening, Hospitalization)
  Sender: FDA-Public Use
  Company Number: ES-ELI_LILLY_AND_COMPANY-ES201406005645

PATIENT
  Age: 77 Year
  Sex: Male
  Weight: 63 kg

DRUGS (2)
  1. XERISTAR [Suspect]
     Indication: URINARY INCONTINENCE
     Dosage: 60 MG, QD
     Route: 048
     Dates: start: 20131104, end: 20140527
  2. PROMETAX /01383201/ [Suspect]
     Indication: DEMENTIA ALZHEIMER^S TYPE
     Dosage: 9.5 MG, QD
     Route: 062
     Dates: start: 20140408, end: 20140528

REACTIONS (17)
  - Renal failure acute [Recovering/Resolving]
  - General physical health deterioration [Recovering/Resolving]
  - Urinary retention [Recovered/Resolved]
  - Hyperkalaemia [Recovered/Resolved]
  - Disorientation [Recovering/Resolving]
  - Restlessness [Recovering/Resolving]
  - Increased upper airway secretion [Unknown]
  - Aspiration [Unknown]
  - Dysphagia [Unknown]
  - Choking [Unknown]
  - Blood glucose increased [Unknown]
  - Pyrexia [Unknown]
  - White blood cell count increased [None]
  - Blood bicarbonate decreased [None]
  - Oxygen saturation decreased [None]
  - PCO2 decreased [None]
  - Blood sodium increased [None]
